FAERS Safety Report 4461589-X (Version None)
Quarter: 2004Q3

REPORT INFORMATION
  Report Type: 
  Country: None (occurrence: None)
  Receive Date: 20040923
  Receipt Date: 20040913
  Transmission Date: 20050211
  Serious: Yes (Other)
  Sender: FDA-Public Use
  Company Number: HQWYE995613SEP04

PATIENT
  Age: 42 Year
  Sex: Female

DRUGS (1)
  1. INDERAL [Suspect]
     Indication: GOITRE
     Dosage: 15 MG 1X PER 1 DAY ORAL  APPROXIMATELY ONE MONTH
     Route: 048
     Dates: start: 20040501, end: 20040501

REACTIONS (1)
  - CATARACT [None]
